FAERS Safety Report 8467437-5 (Version None)
Quarter: 2012Q2

REPORT INFORMATION
  Report Type: 
  Country: None (occurrence: None)
  Receive Date: 20120626
  Receipt Date: 20120405
  Transmission Date: 20120825
  Serious: No
  Sender: FDA-Public Use
  Company Number: US-ASTRAZENECA-2012SE02521

PATIENT
  Age: 69 Year
  Sex: Female

DRUGS (11)
  1. ATENOLOL [Concomitant]
     Indication: BLOOD PRESSURE ABNORMAL
  2. DIPHENOXYLATE HCL + ATROPINE SULFATE [Concomitant]
  3. CAPRELSA [Suspect]
     Indication: THYROID CANCER
     Route: 048
  4. NASONEX [Concomitant]
     Indication: MULTIPLE ALLERGIES
  5. CEPHALEXIN [Concomitant]
  6. ASPIRIN ADULT LOW STRENGTH [Concomitant]
  7. CAPRELSA [Suspect]
     Route: 048
     Dates: start: 20111227
  8. EPINEPHRINE [Concomitant]
  9. FEXOFENADINE HCL [Concomitant]
  10. LEVOTHYROXINE SODIUM [Concomitant]
     Indication: THYROID DISORDER
  11. MUCINEX D [Concomitant]
     Indication: COUGH

REACTIONS (5)
  - PALPITATIONS [None]
  - NOCTURNAL FEAR [None]
  - FATIGUE [None]
  - ANXIETY [None]
  - RASH [None]
